FAERS Safety Report 25488284 (Version 1)
Quarter: 2025Q2

REPORT INFORMATION
  Report Type: Spontaneous
  Country: JP (occurrence: JP)
  Receive Date: 20250627
  Receipt Date: 20250627
  Transmission Date: 20250716
  Serious: Yes (Death, Life-Threatening, Hospitalization, Other)
  Sender: STRIDES
  Company Number: JP-MLMSERVICE-20250609-PI536034-00270-1

PATIENT
  Age: 61 Year
  Sex: Female

DRUGS (14)
  1. PREDNISOLONE [Suspect]
     Active Substance: PREDNISOLONE
     Indication: Systemic lupus erythematosus
     Route: 065
     Dates: start: 1989, end: 2016
  2. PREDNISOLONE [Suspect]
     Active Substance: PREDNISOLONE
     Indication: Arthralgia
     Route: 065
     Dates: start: 2016, end: 2018
  3. PREDNISOLONE [Suspect]
     Active Substance: PREDNISOLONE
     Route: 065
     Dates: start: 2018
  4. PREDNISOLONE [Suspect]
     Active Substance: PREDNISOLONE
     Route: 065
  5. PREDNISOLONE [Suspect]
     Active Substance: PREDNISOLONE
     Route: 065
     Dates: end: 2023
  6. PREDNISOLONE [Suspect]
     Active Substance: PREDNISOLONE
     Route: 065
     Dates: end: 2023
  7. TACROLIMUS [Suspect]
     Active Substance: TACROLIMUS
     Indication: Systemic lupus erythematosus
     Route: 065
  8. TACROLIMUS [Suspect]
     Active Substance: TACROLIMUS
     Route: 065
  9. METHYLPREDNISOLONE [Suspect]
     Active Substance: METHYLPREDNISOLONE
     Indication: Systemic lupus erythematosus
     Route: 065
  10. METHYLPREDNISOLONE [Suspect]
     Active Substance: METHYLPREDNISOLONE
     Indication: Thrombotic microangiopathy
  11. RITUXIMAB [Suspect]
     Active Substance: RITUXIMAB
     Indication: Systemic lupus erythematosus
     Route: 065
  12. RITUXIMAB [Suspect]
     Active Substance: RITUXIMAB
     Indication: Thrombotic microangiopathy
  13. HUMAN PLASMA [Concomitant]
     Active Substance: HUMAN PLASMA
     Indication: Systemic lupus erythematosus
     Route: 065
  14. HUMAN PLASMA [Concomitant]
     Active Substance: HUMAN PLASMA
     Indication: Thrombotic microangiopathy

REACTIONS (7)
  - Candida sepsis [Fatal]
  - Respiratory distress [Recovering/Resolving]
  - Haemorrhagic pneumonia [Recovered/Resolved]
  - Stenotrophomonas infection [Recovered/Resolved]
  - Drug ineffective [Unknown]
  - Thrombotic microangiopathy [Not Recovered/Not Resolved]
  - Drug ineffective for unapproved indication [Unknown]
